FAERS Safety Report 20072013 (Version 1)
Quarter: 2021Q4

REPORT INFORMATION
  Report Type: Spontaneous
  Country: JP (occurrence: JP)
  Receive Date: 20211116
  Receipt Date: 20211116
  Transmission Date: 20220303
  Serious: Yes (Hospitalization)
  Sender: FDA-Public Use
  Company Number: JP-CELLTRION INC.-2021JP015221

PATIENT

DRUGS (2)
  1. INFLIXIMAB [Suspect]
     Active Substance: INFLIXIMAB
     Indication: Behcet^s syndrome
     Dosage: UNK, 1ST DOSE THEN AT WEEKS 2 AND 4 AND WAS SUBSEQUENTLY ADMINISTERED IN 8-WEEK INTERVALS
     Route: 042
  2. COLCHICINE [Concomitant]
     Active Substance: COLCHICINE
     Indication: Behcet^s syndrome
     Route: 048

REACTIONS (3)
  - Enteritis infectious [Unknown]
  - Off label use [Unknown]
  - Drug effective for unapproved indication [Unknown]
